FAERS Safety Report 7001393-1 (Version None)
Quarter: 2010Q3

REPORT INFORMATION
  Report Type: 
  Country: None (occurrence: None)
  Receive Date: 20100920
  Receipt Date: 20100112
  Transmission Date: 20110219
  Serious: Yes (Other)
  Sender: FDA-Public Use
  Company Number: US-ASTRAZENECA-2010SE01560

PATIENT
  Age: 34 Year
  Sex: Male
  Weight: 111.1 kg

DRUGS (3)
  1. SEROQUEL [Suspect]
     Indication: DEPRESSION
     Route: 048
     Dates: start: 20040101, end: 20081023
  2. BUSPIRONE HCL [Concomitant]
     Dates: start: 20050101
  3. FLUVOXAMINE MALEATE [Concomitant]
     Dates: start: 20050101

REACTIONS (2)
  - GASTRIC DISORDER [None]
  - PANCREATITIS [None]
